FAERS Safety Report 16003286 (Version 1)
Quarter: 2019Q1

REPORT INFORMATION
  Report Type: Report from Study
  Country: None (occurrence: BE)
  Receive Date: 20190225
  Receipt Date: 20190225
  Transmission Date: 20190418
  Serious: Yes (Death, Other)
  Sender: FDA-Public Use
  Company Number: BE-ABBVIE-19K-013-2680609-00

PATIENT
  Sex: Male

DRUGS (4)
  1. ARA-C [Concomitant]
     Active Substance: CYTARABINE
     Dates: start: 201810
  2. ARA-C [Concomitant]
     Active Substance: CYTARABINE
     Indication: PRODUCT USED FOR UNKNOWN INDICATION
     Route: 042
     Dates: start: 20171124
  3. VENCLYXTO [Suspect]
     Active Substance: VENETOCLAX
     Indication: ACUTE MYELOID LEUKAEMIA
     Route: 048
     Dates: start: 201810
  4. ARA-C [Concomitant]
     Active Substance: CYTARABINE
     Dates: start: 20171219, end: 20171221

REACTIONS (2)
  - Acute myeloid leukaemia [Unknown]
  - Death [Fatal]
